FAERS Safety Report 10341810 (Version 1)
Quarter: 2014Q3

REPORT INFORMATION
  Report Type: Spontaneous
  Country: US (occurrence: US)
  Receive Date: 20140725
  Receipt Date: 20140725
  Transmission Date: 20150326
  Serious: No
  Sender: FDA-Public Use
  Company Number: US-AMGEN INC.-USASP2014054728

PATIENT
  Age: 24 Year
  Sex: Female

DRUGS (1)
  1. ENBREL [Suspect]
     Active Substance: ETANERCEPT
     Indication: PSORIASIS
     Dosage: UNK
     Route: 065
     Dates: start: 2013, end: 201407

REACTIONS (5)
  - Rash erythematous [Not Recovered/Not Resolved]
  - Pain of skin [Not Recovered/Not Resolved]
  - Purpura [Not Recovered/Not Resolved]
  - Asthenia [Not Recovered/Not Resolved]
  - Scratch [Not Recovered/Not Resolved]

NARRATIVE: CASE EVENT DATE: 2014
